FAERS Safety Report 5141444-2 (Version None)
Quarter: 2006Q4

REPORT INFORMATION
  Report Type: 
  Country: None (occurrence: None)
  Receive Date: 20061101
  Receipt Date: 20061026
  Transmission Date: 20070319
  Serious: Yes (Other)
  Sender: FDA-Public Use
  Company Number: BR-JNJFOC-20061006425

PATIENT
  Age: 21 Year
  Sex: Female
  Weight: 85 kg

DRUGS (5)
  1. IMOSEC [Suspect]
     Route: 048
  2. IMOSEC [Suspect]
     Route: 048
  3. IMOSEC [Suspect]
     Indication: ANTIBIOTIC PROPHYLAXIS
     Route: 048
  4. PEPSAMAR [Concomitant]
     Indication: HYPERCHLORHYDRIA
  5. DORFLEX [Concomitant]
     Indication: ANTIBIOTIC PROPHYLAXIS
     Route: 048

REACTIONS (3)
  - DRUG INEFFECTIVE [None]
  - HYPOTENSION [None]
  - SYNCOPE [None]
